FAERS Safety Report 6998368-5 (Version None)
Quarter: 2010Q3

REPORT INFORMATION
  Report Type: 
  Country: None (occurrence: None)
  Receive Date: 20100920
  Receipt Date: 20100908
  Transmission Date: 20110219
  Serious: Yes (Hospitalization, Other)
  Sender: FDA-Public Use
  Company Number: CA-JNJFOC-20100508869

PATIENT
  Sex: Female
  Weight: 103 kg

DRUGS (6)
  1. REMICADE [Suspect]
     Indication: CROHN'S DISEASE
     Route: 042
  2. REMICADE [Suspect]
     Route: 042
  3. REMICADE [Suspect]
     Route: 042
  4. TYLENOL [Concomitant]
  5. ZANTAC [Concomitant]
  6. VITAMIN TAB [Concomitant]

REACTIONS (5)
  - ANTEPARTUM HAEMORRHAGE [None]
  - DRUG EXPOSURE DURING PREGNANCY [None]
  - GROIN ABSCESS [None]
  - THREATENED LABOUR [None]
  - VAGINAL HAEMORRHAGE [None]
